FAERS Safety Report 14827701 (Version 4)
Quarter: 2019Q1

REPORT INFORMATION
  Report Type: Spontaneous
  Country: JP (occurrence: JP)
  Receive Date: 20180430
  Receipt Date: 20190121
  Transmission Date: 20190417
  Serious: Yes (Death, Disabling, Other)
  Sender: FDA-Public Use
  Company Number: JP-009507513-1803JPN000430J

PATIENT
  Age: 76 Year
  Sex: Male
  Weight: 73 kg

DRUGS (15)
  1. CALCIUM POLYSTYRENE SULFONATE [Concomitant]
     Active Substance: CALCIUM POLYSTYRENE SULFONATE
     Dosage: 25 G, QD
     Route: 048
     Dates: end: 20171107
  2. ROSUVASTATIN. [Concomitant]
     Active Substance: ROSUVASTATIN
     Dosage: 2.5 MG, QD
     Route: 048
     Dates: end: 20171107
  3. AZELNIDIPINE [Concomitant]
     Active Substance: AZELNIDIPINE
     Dosage: 20 MG, QD
     Route: 048
     Dates: end: 20171107
  4. EMPAGLIFLOZIN [Concomitant]
     Active Substance: EMPAGLIFLOZIN
     Dosage: 20 MG, QD
     Route: 048
     Dates: end: 20171107
  5. SODIUM RABEPRAZOLE [Concomitant]
     Active Substance: RABEPRAZOLE SODIUM
     Dosage: 20 MG, QD
     Route: 048
     Dates: end: 20171117
  6. INSULIN LISPRO(GENETICAL RECOMBINATION) [Concomitant]
     Dosage: 12 DF, TID
     Route: 051
  7. THIAMAZOLE [Concomitant]
     Active Substance: METHIMAZOLE
     Indication: BASEDOW^S DISEASE
     Dosage: 2 DF, QD
     Route: 048
     Dates: end: 20171117
  8. ASPIRIN. [Concomitant]
     Active Substance: ASPIRIN
     Dosage: 100 MG, QD
     Route: 048
     Dates: end: 20171107
  9. OLMESARTAN MEDOXOMIL. [Concomitant]
     Active Substance: OLMESARTAN MEDOXOMIL
     Dosage: 20 MG, QD
     Route: 048
     Dates: end: 20171107
  10. CARVEDILOL. [Concomitant]
     Active Substance: CARVEDILOL
     Dosage: 20 MG, UNK
     Route: 048
     Dates: end: 20171107
  11. FUROSEMIDE. [Concomitant]
     Active Substance: FUROSEMIDE
     Dosage: 60 MG, UNK
     Route: 048
     Dates: end: 20171117
  12. FLUTICASONE FUROATE (+) VILANTEROL TRIFENATATE [Concomitant]
     Active Substance: FLUTICASONE FUROATE\VILANTEROL TRIFENATATE
     Dosage: 1 DF, UNK
     Route: 055
     Dates: end: 20171118
  13. KEYTRUDA [Suspect]
     Active Substance: PEMBROLIZUMAB
     Indication: NON-SMALL CELL LUNG CANCER
     Dosage: 200 MG, UNK
     Route: 041
     Dates: start: 20170927
  14. HUMULIN N [Concomitant]
     Active Substance: INSULIN HUMAN
     Dosage: 10 DF, UNK
     Route: 051
  15. ELIQUIS [Concomitant]
     Active Substance: APIXABAN
     Dosage: UNK
     Route: 048
     Dates: end: 20171117

REACTIONS (3)
  - Malignant neoplasm progression [Fatal]
  - Thyroiditis [Recovering/Resolving]
  - Atrial fibrillation [Recovered/Resolved with Sequelae]

NARRATIVE: CASE EVENT DATE: 20171002
